FAERS Safety Report 9938034 (Version 2)
Quarter: 2015Q4

REPORT INFORMATION
  Report Type: Report from Study
  Country: US (occurrence: US)
  Receive Date: 20140303
  Receipt Date: 20151120
  Transmission Date: 20160305
  Serious: Yes (Other)
  Sender: FDA-Public Use
  Company Number: US-ROCHE-1343042

PATIENT
  Age: 55 Year
  Sex: Female

DRUGS (5)
  1. LUCENTIS [Suspect]
     Active Substance: RANIBIZUMAB
     Indication: RETINAL DYSTROPHY
  2. LUCENTIS [Suspect]
     Active Substance: RANIBIZUMAB
     Indication: RETINAL NEOVASCULARISATION
  3. LUCENTIS [Suspect]
     Active Substance: RANIBIZUMAB
     Indication: CHOROIDAL NEOVASCULARISATION
     Dosage: RECEIVED ON 23/MAY/2011, 01/AUG/2011, 22/OCT/2012, 30/JUL/2012
     Route: 050
  4. AVASTIN [Suspect]
     Active Substance: BEVACIZUMAB
     Indication: PRODUCT USED FOR UNKNOWN INDICATION
     Route: 050
  5. LUCENTIS [Suspect]
     Active Substance: RANIBIZUMAB
     Indication: STARGARDT^S DISEASE
     Dosage: RECEIVED ON 27/JUN/2011, 05/DEC/2011, 23/FEB/2012, 29/FEB/2012, 02/MAY/2012, 18/JUN/2012, 10/SEP/201
     Route: 050

REACTIONS (10)
  - Presumed ocular histoplasmosis syndrome [Unknown]
  - Detachment of retinal pigment epithelium [Unknown]
  - Retinal exudates [Unknown]
  - Subretinal fluid [Unknown]
  - Hypertension [Unknown]
  - Vision blurred [Unknown]
  - Visual acuity reduced [Unknown]
  - Visual impairment [Unknown]
  - Macular oedema [Unknown]
  - Off label use [Unknown]

NARRATIVE: CASE EVENT DATE: 20110919
